FAERS Safety Report 7916486-1 (Version None)
Quarter: 2011Q4

REPORT INFORMATION
  Report Type: 
  Country: None (occurrence: None)
  Receive Date: 20111114
  Receipt Date: 20111104
  Transmission Date: 20120403
  Serious: Yes (Death)
  Sender: FDA-Public Use
  Company Number: ADR-2011-10973

PATIENT
  Age: 57 Year
  Sex: Male

DRUGS (4)
  1. BUPIVACAINE 30 MG/ML [Concomitant]
  2. LIORESAL [Suspect]
     Indication: PAIN
     Dosage: 13.51 MCG, DAILY, INTRA
  3. CLONIDINE [Concomitant]
  4. DILAUDID-20 MG/ML [Concomitant]

REACTIONS (1)
  - PANCREATITIS [None]
